FAERS Safety Report 14511670 (Version 1)
Quarter: 2018Q1

REPORT INFORMATION
  Report Type: Report from Study
  Country: US (occurrence: US)
  Receive Date: 20180209
  Receipt Date: 20180209
  Transmission Date: 20180509
  Serious: Yes (Hospitalization)
  Sender: FDA-Public Use
  Company Number: US-VERTEX PHARMACEUTICALS-2018-000367

PATIENT
  Sex: Male
  Weight: 60 kg

DRUGS (20)
  1. DUONEB [Concomitant]
     Active Substance: ALBUTEROL SULFATE\IPRATROPIUM BROMIDE
     Indication: WHEEZING
     Dosage: TAKE BY NEBULIZATION 4 (FOUR) TIMES DAILY AS NEEDED FOR WHEEZING.
  2. CREON [Concomitant]
     Active Substance: PANCRELIPASE AMYLASE\PANCRELIPASE LIPASE\PANCRELIPASE PROTEASE
     Dosage: TAKE 5 CAPSULES BY MOUTH 3 (THREE) TIMES DAILY WITH MEALS.
  3. SODIUM CHLORIDE. [Concomitant]
     Active Substance: SODIUM CHLORIDE
     Dosage: TAKE BY NEBULIZATION DAILY
     Route: 055
  4. NOVOLOG [Concomitant]
     Active Substance: INSULIN ASPART
  5. TOBI [Concomitant]
     Active Substance: TOBRAMYCIN
  6. ALBUTEROL                          /00139501/ [Concomitant]
     Active Substance: ALBUTEROL
     Dosage: INHALE 2 PUFFS INTO THE LUNGS EVERY 4 (FOUR) HOURS AS NEEDED FOR WHEEZING.
  7. PULMOZYME [Concomitant]
     Active Substance: DORNASE ALFA
     Dosage: TAKE 2.5 MLS BY NEBULIZATION ONCE DAILY.
     Route: 055
  8. ALBUTEROL HFA [Concomitant]
     Active Substance: ALBUTEROL SULFATE
     Dosage: INHALE 2 PUFFS INTO THE LUNGS EVERY 4 HOURS AS NEEDED FOR WHEEZING
  9. VITAMIN D3 [Concomitant]
     Active Substance: CHOLECALCIFEROL
     Dosage: 1 DOSAGE FORM ) BY MOUTH ONCE A WEEK
     Route: 048
  10. IMITREX [Concomitant]
     Active Substance: SUMATRIPTAN SUCCINATE
     Dosage: 1 DOSAGE FORM EVERY 2 (TWO) HOURS AS NEEDED FOR MIGRAINE
     Route: 048
  11. ZITHROMAX [Concomitant]
     Active Substance: AZITHROMYCIN DIHYDRATE
     Dosage: TAKE BY MOUTH 3 TIMES PER WEEK.
     Route: 048
  12. LISINOPRIL. [Concomitant]
     Active Substance: LISINOPRIL
     Route: 048
  13. CIPROFLOXACIN HCL [Concomitant]
     Active Substance: CIPROFLOXACIN HYDROCHLORIDE
     Dosage: TAKE 1 TABLET (750 MG PER DOSE) BY MOUTH 2 (TWO) TIMES DAILY FOR 21 DAYS.
     Route: 048
  14. CAYSTON [Concomitant]
     Active Substance: AZTREONAM
  15. LANTUS [Concomitant]
     Active Substance: INSULIN GLARGINE
  16. ORKAMBI [Suspect]
     Active Substance: IVACAFTOR\LUMACAFTOR
     Indication: CYSTIC FIBROSIS
     Dosage: 200/125 MG, BID
     Route: 048
     Dates: start: 20170511, end: 20171127
  17. TYLENOL [Concomitant]
     Active Substance: ACETAMINOPHEN
     Dosage: 2 DOSAGE FORM BY MOUTH EVERY 6 (SIX) AS NEEDED
     Route: 048
  18. ALERTNESS AID CAFFEINE [Concomitant]
     Dosage: 1 DOSAGE FORM EVERY 4 (FOUR) HOURS AS NEEDED FOR MIGRAINE AND HEADACHES
     Route: 048
  19. HEPARIN LOCK FLUSH [Concomitant]
     Active Substance: HEPARIN SODIUM
     Dosage: 5 MLS,INTRACATHETER
  20. LEVEMIR [Concomitant]
     Active Substance: INSULIN DETEMIR
     Dosage: INJECT 16 UNITS UNDER THE SKIN EVERY MORNING.

REACTIONS (5)
  - Dyspnoea [Unknown]
  - Respiration abnormal [Unknown]
  - Pulmonary function test decreased [Unknown]
  - Productive cough [Unknown]
  - Infective pulmonary exacerbation of cystic fibrosis [Unknown]

NARRATIVE: CASE EVENT DATE: 2017
